FAERS Safety Report 13624497 (Version 1)
Quarter: 2017Q2

REPORT INFORMATION
  Report Type: Spontaneous
  Country: FR (occurrence: FR)
  Receive Date: 20170608
  Receipt Date: 20170608
  Transmission Date: 20170830
  Serious: Yes (Disabling)
  Sender: FDA-Public Use
  Company Number: FR-ROCHE-1943250

PATIENT
  Age: 1 Day
  Sex: Female
  Weight: 3.53 kg

DRUGS (2)
  1. RIVOTRIL [Suspect]
     Active Substance: CLONAZEPAM
     Indication: MYOCLONUS
     Route: 042
     Dates: start: 20170307, end: 20170310
  2. GARDENAL [Suspect]
     Active Substance: PHENOBARBITAL
     Indication: MYOCLONUS
     Route: 042
     Dates: start: 20170307, end: 20170309

REACTIONS (6)
  - Hypotonia [Recovered/Resolved]
  - Disturbance in attention [Recovered/Resolved]
  - Somnolence [Recovered/Resolved]
  - Poor sucking reflex [Recovered/Resolved]
  - Motor dysfunction [Recovered/Resolved]
  - Dysphagia [Recovered/Resolved]

NARRATIVE: CASE EVENT DATE: 20170307
